FAERS Safety Report 25099565 (Version 3)
Quarter: 2025Q4

REPORT INFORMATION
  Report Type: Spontaneous
  Country: JP (occurrence: JP)
  Receive Date: 20250320
  Receipt Date: 20251209
  Transmission Date: 20260118
  Serious: Yes (Death, Other)
  Sender: MERCK SHARP & DOHME LLC
  Company Number: JP-009507513-2265205

PATIENT
  Age: 5 Decade
  Sex: Male

DRUGS (3)
  1. KEYTRUDA [Suspect]
     Active Substance: PEMBROLIZUMAB
     Indication: Gastric cancer stage IV
     Dosage: 4 COURSES
     Route: 041
     Dates: start: 202501, end: 20250514
  2. CAPECITABINE [Suspect]
     Active Substance: CAPECITABINE
     Indication: Gastric cancer stage IV
     Route: 048
     Dates: end: 2025
  3. OXALIPLATIN [Suspect]
     Active Substance: OXALIPLATIN
     Indication: Gastric cancer stage IV
     Route: 041
     Dates: end: 2025

REACTIONS (2)
  - Malignant neoplasm progression [Fatal]
  - Haematotoxicity [Recovering/Resolving]

NARRATIVE: CASE EVENT DATE: 20250101
